FAERS Safety Report 18331580 (Version 1)
Quarter: 2020Q3

REPORT INFORMATION
  Report Type: Spontaneous
  Country: CN (occurrence: CN)
  Receive Date: 20200930
  Receipt Date: 20200930
  Transmission Date: 20201103
  Serious: Yes (Hospitalization)
  Sender: FDA-Public Use
  Company Number: CN-PFIZER INC-2020375423

PATIENT
  Age: 11 Year
  Sex: Female
  Weight: 55 kg

DRUGS (2)
  1. METHOTREXATE. [Suspect]
     Active Substance: METHOTREXATE
     Indication: OSTEOSARCOMA
     Dosage: 15 G, 1X/DAY
     Route: 041
     Dates: start: 20200914, end: 20200914
  2. SODIUM CHLORIDE. [Suspect]
     Active Substance: SODIUM CHLORIDE
     Indication: OSTEOSARCOMA
     Dosage: 850 ML, 1X/DAY
     Route: 041
     Dates: start: 20200914, end: 20200914

REACTIONS (2)
  - Hypoaesthesia [Unknown]
  - Cytopenia [Unknown]

NARRATIVE: CASE EVENT DATE: 20200915
